FAERS Safety Report 9524742 (Version 1)
Quarter: 2013Q3

REPORT INFORMATION
  Report Type: Spontaneous
  Country: US (occurrence: None)
  Receive Date: 20130912
  Receipt Date: 20130912
  Transmission Date: 20140515
  Serious: Yes (Other)
  Sender: FDA-Public Use
  Company Number: None

PATIENT
  Age: 63 Year
  Sex: Female
  Weight: 86.64 kg

DRUGS (4)
  1. ATORVASTATIN CALCIUM [Suspect]
     Indication: BLOOD CHOLESTEROL INCREASED
     Route: 048
     Dates: start: 20130621, end: 20130626
  2. VITAMIN D [Concomitant]
  3. KRILL OIL [Concomitant]
  4. MULTI VITAMIN [Concomitant]

REACTIONS (3)
  - Paraesthesia [None]
  - Myalgia [None]
  - Arthralgia [None]
